FAERS Safety Report 7093776-9 (Version None)
Quarter: 2010Q4

REPORT INFORMATION
  Report Type: 
  Country: None (occurrence: None)
  Receive Date: 20101110
  Receipt Date: 20101101
  Transmission Date: 20110411
  Serious: Yes (Death)
  Sender: FDA-Public Use
  Company Number: DE-NOVOPROD-317635

PATIENT

DRUGS (2)
  1. NOVOSEVEN [Suspect]
     Indication: ACQUIRED HAEMOPHILIA WITH ANTI FVIII, XI, OR XIII
     Dosage: UNK
  2. FEIBA [Suspect]
     Dosage: UNK

REACTIONS (1)
  - ACUTE MYOCARDIAL INFARCTION [None]
